FAERS Safety Report 5403824-7 (Version None)
Quarter: 2007Q3

REPORT INFORMATION
  Report Type: 
  Country: None (occurrence: None)
  Receive Date: 20070731
  Receipt Date: 20070731
  Transmission Date: 20080115
  Serious: Yes (Disabling)
  Sender: FDA-Public Use
  Company Number: None

PATIENT
  Age: 59 Year
  Sex: Male
  Weight: 110 kg

DRUGS (12)
  1. DIAZEPAM [Suspect]
     Indication: SEDATION
     Dosage: 10 MG X 1 DOSE PO
     Route: 048
     Dates: start: 20070201, end: 20070201
  2. ACETYLCYSTEINE [Concomitant]
  3. CARVEDILOL [Concomitant]
  4. CEFAZOLIN [Concomitant]
  5. DIGOXIN [Concomitant]
  6. FUROSEMIDE [Concomitant]
  7. INSULIN ASPART [Concomitant]
  8. LEVOTHYROXINE SODIUM [Concomitant]
  9. METOLAZONE [Concomitant]
  10. POTASSIUM CHLORIDE [Concomitant]
  11. RAMIPRIL [Concomitant]
  12. SPIRONOLACTONE [Concomitant]

REACTIONS (1)
  - LOSS OF CONSCIOUSNESS [None]
